FAERS Safety Report 4393561-2 (Version None)
Quarter: 2004Q3

REPORT INFORMATION
  Report Type: 
  Country: None (occurrence: None)
  Receive Date: 20040701
  Receipt Date: 20040615
  Transmission Date: 20050211
  Serious: No
  Sender: FDA-Public Use
  Company Number: PHRM2004FR01598

PATIENT
  Age: 64 Year
  Sex: Male
  Weight: 73.0291 kg

DRUGS (1)
  1. VISUDYNE [Suspect]
     Indication: MACULAR DEGENERATION
     Dates: start: 20040121, end: 20040121

REACTIONS (4)
  - INTESTINAL OBSTRUCTION [None]
  - NEPHROLITHIASIS [None]
  - RENAL COLIC [None]
  - URINARY RETENTION [None]
